FAERS Safety Report 19219108 (Version 1)
Quarter: 2021Q2

REPORT INFORMATION
  Report Type: Spontaneous
  Country: US (occurrence: US)
  Receive Date: 20210506
  Receipt Date: 20210506
  Transmission Date: 20210717
  Serious: No
  Sender: FDA-Public Use
  Company Number: US-ROCHE-2601012

PATIENT
  Sex: Male
  Weight: 78.54 kg

DRUGS (5)
  1. ESBRIET [Suspect]
     Active Substance: PIRFENIDONE
     Dosage: WITH MEALS FOR ONE WEEK OR MORE
     Route: 048
  2. ESBRIET [Suspect]
     Active Substance: PIRFENIDONE
     Indication: IDIOPATHIC PULMONARY FIBROSIS
     Dosage: WITH MEALS FOR ONE WEEK
     Route: 048
     Dates: start: 20200408, end: 20200505
  3. LORATADINE. [Concomitant]
     Active Substance: LORATADINE
     Indication: SEASONAL ALLERGY
     Dosage: IN THE MORNING
     Route: 048
  4. ESBRIET [Suspect]
     Active Substance: PIRFENIDONE
     Dosage: WITH MEALS FOR ONE WEEK
     Route: 048
  5. ATENOLOL. [Concomitant]
     Active Substance: ATENOLOL
     Indication: HYPERTENSION
     Route: 048

REACTIONS (5)
  - Skin warm [Not Recovered/Not Resolved]
  - Flushing [Not Recovered/Not Resolved]
  - Diarrhoea [Not Recovered/Not Resolved]
  - Rash [Not Recovered/Not Resolved]
  - Fatigue [Not Recovered/Not Resolved]
